FAERS Safety Report 14651179 (Version 4)
Quarter: 2018Q2

REPORT INFORMATION
  Report Type: Spontaneous
  Country: CN (occurrence: CN)
  Receive Date: 20180316
  Receipt Date: 20180430
  Transmission Date: 20180711
  Serious: Yes (Hospitalization, Other)
  Sender: FDA-Public Use
  Company Number: CN-GILEAD-2018-0326499

PATIENT
  Age: 43 Year
  Sex: Male
  Weight: 82 kg

DRUGS (9)
  1. VIREAD [Suspect]
     Active Substance: TENOFOVIR DISOPROXIL FUMARATE
     Indication: HEPATITIS B
     Dosage: 300 MG, QD
     Route: 048
     Dates: start: 201801
  2. INSULIN [Concomitant]
     Active Substance: INSULIN NOS
     Indication: DIABETES MELLITUS
     Dosage: UNK
     Route: 030
  3. HEPTODIN [Suspect]
     Active Substance: LAMIVUDINE
     Indication: HEPATITIS B
     Dosage: UNK
     Route: 065
     Dates: end: 201710
  4. FLUOCINONIDE. [Concomitant]
     Active Substance: FLUOCINONIDE
  5. COMPOUND GLYCYRRHIZIN              /00518801/ [Suspect]
     Active Substance: CYSTEINE\GLYCINE\GLYCYRRHIZIN
     Indication: PRODUCT USED FOR UNKNOWN INDICATION
     Dosage: UNK
     Route: 065
     Dates: start: 20171021, end: 20180130
  6. METFORMIN [Concomitant]
     Active Substance: METFORMIN HYDROCHLORIDE
     Indication: DIABETES MELLITUS
     Dosage: 1 DF, UNK
     Route: 048
  7. TENOFOVIR DISOPROXIL FUMARATE. [Suspect]
     Active Substance: TENOFOVIR DISOPROXIL FUMARATE
     Indication: HEPATITIS B
     Dosage: 300 MG, QD
     Route: 048
     Dates: start: 201710
  8. DIAMMONIUM GLYCYRRHIZINATE [Suspect]
     Active Substance: HERBALS\DIAMMONIUM GLYCYRRHIZINATE
     Indication: HEPATITIS B
     Dosage: 3 DF, TID
     Route: 048
     Dates: start: 201710, end: 201802
  9. DIAMMONIUM GLYCYRRHIZINATE [Suspect]
     Active Substance: HERBALS\DIAMMONIUM GLYCYRRHIZINATE
     Indication: PROPHYLAXIS

REACTIONS (22)
  - Dermatitis allergic [Recovering/Resolving]
  - Varices oesophageal [Unknown]
  - Gastritis erosive [Unknown]
  - Rash pruritic [Recovering/Resolving]
  - Decreased appetite [Unknown]
  - Rash [Recovering/Resolving]
  - Pyrexia [Unknown]
  - Asthenia [Unknown]
  - Rash [Recovering/Resolving]
  - Liver injury [Unknown]
  - Abdominal distension [Unknown]
  - Scab [Not Recovered/Not Resolved]
  - Skin swelling [Unknown]
  - Hepatic cirrhosis [Not Recovered/Not Resolved]
  - Skin exfoliation [Recovering/Resolving]
  - Hepatic pain [Unknown]
  - Erythema [Unknown]
  - Gastric varices [Unknown]
  - Constipation [Unknown]
  - Spider naevus [Unknown]
  - Hepatic cirrhosis [Unknown]
  - Drug resistance [Unknown]

NARRATIVE: CASE EVENT DATE: 2017
